FAERS Safety Report 5476836-5 (Version None)
Quarter: 2007Q4

REPORT INFORMATION
  Report Type: 
  Country: None (occurrence: None)
  Receive Date: 20071002
  Receipt Date: 20070921
  Transmission Date: 20080405
  Serious: Yes (Hospitalization)
  Sender: FDA-Public Use
  Company Number: 163-C5013-07091190

PATIENT
  Age: 90 Year
  Sex: Female
  Weight: 63.5 kg

DRUGS (11)
  1. CC-5013 (LENALIDOMIDE) (CAPSULES) [Suspect]
     Indication: B-CELL LYMPHOMA
     Dosage: 25 MG, QD DAYS 1-21 EVERY 28 DAYS, ORAL
     Route: 048
     Dates: start: 20070813, end: 20070921
  2. DEXAMETHASONE TAB [Suspect]
     Indication: B-CELL LYMPHOMA
  3. ATENOLOL [Concomitant]
  4. ASPIRIN [Concomitant]
  5. SYNTHROID [Concomitant]
  6. MULTIVITAMIN [Concomitant]
  7. PROTONIX [Concomitant]
  8. XANAX [Concomitant]
  9. MS CONTIN [Concomitant]
  10. REGLAN [Concomitant]
  11. ARANESP [Concomitant]

REACTIONS (9)
  - ANAEMIA [None]
  - BLOOD ALBUMIN DECREASED [None]
  - BLOOD CALCIUM DECREASED [None]
  - BLOOD GLUCOSE INCREASED [None]
  - BODY TEMPERATURE INCREASED [None]
  - DISCOMFORT [None]
  - FLATULENCE [None]
  - HYPONATRAEMIA [None]
  - PROTEIN TOTAL ABNORMAL [None]
